FAERS Safety Report 15743456 (Version 1)
Quarter: 2018Q4

REPORT INFORMATION
  Report Type: Spontaneous
  Country: CN (occurrence: CN)
  Receive Date: 20181220
  Receipt Date: 20181220
  Transmission Date: 20190205
  Serious: Yes (Hospitalization)
  Sender: FDA-Public Use
  Company Number: CN-ROCHE-2233205

PATIENT
  Age: 52 Year
  Sex: Male

DRUGS (16)
  1. CYCLOPHOSPHAMIDE. [Concomitant]
     Active Substance: CYCLOPHOSPHAMIDE
     Dosage: ON DAY 1
     Route: 065
  2. VINDESINE [Concomitant]
     Active Substance: VINDESINE
     Dosage: ON DAY 1
     Route: 065
  3. MABTHERA [Suspect]
     Active Substance: RITUXIMAB
     Indication: DIFFUSE LARGE B-CELL LYMPHOMA STAGE II
     Dosage: ON DAY 0
     Route: 065
  4. VINCRISTINE [Concomitant]
     Active Substance: VINCRISTINE
     Dosage: ON DAY 2
     Route: 065
  5. PREDNISONE. [Concomitant]
     Active Substance: PREDNISONE
     Dosage: FROM DAY 1 TO DAY 5
     Route: 065
  6. OXALIPLATIN. [Concomitant]
     Active Substance: OXALIPLATIN
  7. MABTHERA [Suspect]
     Active Substance: RITUXIMAB
     Dosage: ON DAY 0
     Route: 065
  8. DOXORUBICIN [Concomitant]
     Active Substance: DOXORUBICIN
     Dosage: ON DAY 1
     Route: 065
  9. VINCRISTINE [Concomitant]
     Active Substance: VINCRISTINE
     Dosage: ON DAY 1
     Route: 065
  10. PREDNISONE. [Concomitant]
     Active Substance: PREDNISONE
     Dosage: FROM DAY 1 TO DAY 5
     Route: 065
  11. GEMCITABINE [Concomitant]
     Active Substance: GEMCITABINE\GEMCITABINE HYDROCHLORIDE
  12. VINDESINE [Concomitant]
     Active Substance: VINDESINE
     Route: 065
  13. METHOTREXATE. [Concomitant]
     Active Substance: METHOTREXATE
     Dosage: ON DAY 1
     Route: 065
  14. PROCARBAZINE [Concomitant]
     Active Substance: PROCARBAZINE
     Dosage: FROM DAY 1 TO DAY 7
     Route: 065
  15. MABTHERA [Suspect]
     Active Substance: RITUXIMAB
     Dosage: ON DAY 0
     Route: 065
  16. CYCLOPHOSPHAMIDE. [Concomitant]
     Active Substance: CYCLOPHOSPHAMIDE
     Dosage: ON DAY 1
     Route: 065

REACTIONS (2)
  - Brain oedema [Unknown]
  - Chronic tonsillitis [Recovering/Resolving]
